FAERS Safety Report 6889746-3 (Version None)
Quarter: 2010Q3

REPORT INFORMATION
  Report Type: 
  Country: None (occurrence: None)
  Receive Date: 20100730
  Receipt Date: 20080426
  Transmission Date: 20110219
  Serious: No
  Sender: FDA-Public Use
  Company Number: US-PFIZER INC-2008037226

PATIENT
  Sex: Female

DRUGS (6)
  1. LIPITOR [Suspect]
     Indication: BLOOD CHOLESTEROL INCREASED
     Route: 048
     Dates: start: 20080101
  2. ENALAPRIL [Concomitant]
  3. ACETYLSALICYLIC ACID SRT [Concomitant]
  4. METFORMIN HCL [Concomitant]
     Dosage: 500MG 3 TIMES DAILY TDD: 1500MG
  5. LEVOTHYROXINE SODIUM [Concomitant]
     Dates: start: 20080101
  6. SYNTHROID [Concomitant]
     Dates: end: 20080101

REACTIONS (2)
  - DRUG INTOLERANCE [None]
  - NECK PAIN [None]
